FAERS Safety Report 6162050-7 (Version None)
Quarter: 2009Q2

REPORT INFORMATION
  Report Type: 
  Country: None (occurrence: None)
  Receive Date: 20090417
  Receipt Date: 20090417
  Transmission Date: 20091009
  Serious: Yes (Death)
  Sender: FDA-Public Use
  Company Number: None

PATIENT
  Age: 63 Year
  Sex: Male

DRUGS (1)
  1. CLOPIDOGREL [Suspect]
     Indication: ARTERIAL BYPASS OPERATION
     Dosage: 75 MG BID PO
     Route: 048
     Dates: start: 20090108

REACTIONS (4)
  - ANAEMIA [None]
  - HAEMOTHORAX [None]
  - HYPOTENSION [None]
  - PLEURAL EFFUSION [None]
